FAERS Safety Report 15678729 (Version 1)
Quarter: 2018Q4

REPORT INFORMATION
  Report Type: Spontaneous
  Country: US (occurrence: US)
  Receive Date: 20181202
  Receipt Date: 20181202
  Transmission Date: 20190205
  Serious: No
  Sender: FDA-Public Use
  Company Number: US-ELI_LILLY_AND_COMPANY-US201811013580

PATIENT
  Sex: Female

DRUGS (1)
  1. FORTEO [Suspect]
     Active Substance: TERIPARATIDE
     Indication: OSTEOARTHRITIS
     Dosage: UNK, UNKNOWN
     Route: 065
     Dates: start: 20181124

REACTIONS (2)
  - Accidental underdose [Unknown]
  - Off label use [Unknown]

NARRATIVE: CASE EVENT DATE: 20181124
